FAERS Safety Report 8450343 (Version 6)
Quarter: 2013Q2

REPORT INFORMATION
  Report Type: Report from Study
  Country: AU (occurrence: AU)
  Receive Date: 20120309
  Receipt Date: 20130610
  Transmission Date: 20140414
  Serious: Yes (Hospitalization, Disabling)
  Sender: FDA-Public Use
  Company Number: AU-CELGENEUS-008-50794-12022904

PATIENT
  Age: 80 Year
  Sex: Male
  Weight: 87 kg

DRUGS (11)
  1. VIDAZA [Suspect]
     Indication: MYELODYSPLASTIC SYNDROME
     Dosage: 100 MILLIGRAM
     Route: 058
     Dates: start: 20120220, end: 20120224
  2. REVLIMID [Suspect]
     Indication: MYELODYSPLASTIC SYNDROME
     Dosage: 5 MILLIGRAM
     Route: 048
     Dates: start: 20120220, end: 20120311
  3. PARACETAMOL [Concomitant]
     Indication: ARTHRITIS
     Dosage: 2
     Route: 048
  4. SIMVASTATIN [Concomitant]
     Indication: MYOCARDIAL ISCHAEMIA
     Dosage: 20 MILLIGRAM
     Route: 048
     Dates: start: 20110926
  5. ATENOLOL [Concomitant]
     Indication: HYPERTENSION
     Dosage: 50 MILLIGRAM
     Route: 048
  6. ACICLOVIR [Concomitant]
     Indication: ANTIVIRAL PROPHYLAXIS
     Dosage: 200 MILLIGRAM
     Route: 048
     Dates: start: 20110926
  7. POSACONAZOLE [Concomitant]
     Indication: PROPHYLAXIS
     Dosage: 200 MILLIGRAM
     Route: 048
     Dates: start: 20110926
  8. IRBESARTAN [Concomitant]
     Indication: HYPERTENSION
     Dosage: 150 MILLIGRAM
     Route: 048
     Dates: start: 20111019
  9. ALLOPURINOL [Concomitant]
     Indication: GOUT
     Dosage: 100 MILLIGRAM
     Route: 048
  10. VANCOMYCIN [Concomitant]
     Indication: PRODUCT USED FOR UNKNOWN INDICATION
     Route: 041
  11. I-5GM [Concomitant]
     Indication: PRODUCT USED FOR UNKNOWN INDICATION
     Route: 048

REACTIONS (5)
  - Laryngeal haemorrhage [Recovered/Resolved]
  - Subdural haematoma [Recovered/Resolved]
  - Lung infection [Recovered/Resolved]
  - Back pain [Recovered/Resolved]
  - Staphylococcal sepsis [Not Recovered/Not Resolved]
